FAERS Safety Report 5234117-9 (Version None)
Quarter: 2007Q1

REPORT INFORMATION
  Report Type: 
  Country: None (occurrence: None)
  Receive Date: 20070208
  Receipt Date: 20070129
  Transmission Date: 20070707
  Serious: Yes (Hospitalization)
  Sender: FDA-Public Use
  Company Number: FR-GILEAD-2007-0011140

PATIENT
  Age: 45 Year
  Sex: Female
  Weight: 80 kg

DRUGS (7)
  1. TRUVADA [Suspect]
     Indication: HIV INFECTION
     Route: 048
     Dates: start: 20060117, end: 20061229
  2. VIRAMUNE [Suspect]
     Indication: HIV INFECTION
     Route: 048
     Dates: start: 20060117, end: 20061229
  3. KETOPROFEN [Concomitant]
  4. COLCHIMAX [Concomitant]
     Indication: GOUT
     Route: 048
  5. ZYLORIC [Concomitant]
     Indication: GOUT
     Route: 048
  6. TAREG [Concomitant]
     Route: 048
  7. CARDENSIEL [Concomitant]

REACTIONS (15)
  - ABDOMINAL PAIN UPPER [None]
  - ANOREXIA [None]
  - ARTHRALGIA [None]
  - ASTHENIA [None]
  - BACK PAIN [None]
  - DYSPNOEA [None]
  - HEPATIC ENZYME INCREASED [None]
  - HEPATOMEGALY [None]
  - HYPERTHERMIA [None]
  - MYALGIA [None]
  - PRODUCTIVE COUGH [None]
  - PYREXIA [None]
  - URINE COLOUR ABNORMAL [None]
  - VOMITING [None]
  - WEIGHT DECREASED [None]
